FAERS Safety Report 16861337 (Version 1)
Quarter: 2019Q3

REPORT INFORMATION
  Report Type: Spontaneous
  Country: US (occurrence: US)
  Receive Date: 20190927
  Receipt Date: 20190927
  Transmission Date: 20191005
  Serious: Yes (Hospitalization)
  Sender: FDA-Public Use
  Company Number: US-SA-2019SA264628

PATIENT
  Age: 34 Year
  Sex: Female
  Weight: 61.2 kg

DRUGS (9)
  1. DIPHENHYDRAMINE. [Concomitant]
     Active Substance: DIPHENHYDRAMINE
     Dosage: 50 MG, PRN
     Route: 042
     Dates: start: 20190628
  2. STERILE WATER [Concomitant]
     Active Substance: WATER
     Dosage: UNK UNK, UNK (1 EA; RECON)
     Route: 042
     Dates: start: 20190628
  3. METHYLPREDNISOLONE. [Concomitant]
     Active Substance: METHYLPREDNISOLONE
     Dosage: 125 MG, PRN
     Route: 042
     Dates: start: 20190628
  4. FERROUS SULFATE. [Concomitant]
     Active Substance: FERROUS SULFATE
     Dosage: 325 MG (1 TAB), QD
     Route: 048
     Dates: start: 20160222
  5. NORMAL SALINE [Concomitant]
     Active Substance: SODIUM CHLORIDE
     Dosage: UNK UNK, UNK (DILU)
     Route: 042
     Dates: start: 20190628
  6. CEREZYME [Suspect]
     Active Substance: IMIGLUCERASE
     Indication: GAUCHER^S DISEASE
     Dosage: 4000 U, QOW
     Route: 042
     Dates: start: 20160223
  7. PROBIOTIC 10 [Concomitant]
     Active Substance: DIETARY SUPPLEMENT\PROBIOTICS
     Dosage: 1 DF, QD
     Route: 048
     Dates: start: 20190422
  8. SODIUM CHLORIDE. [Concomitant]
     Active Substance: SODIUM CHLORIDE
     Dosage: UNK UNK, UNK(FLUSH)
     Route: 042
     Dates: start: 20190628
  9. EPINEPHRINE. [Concomitant]
     Active Substance: EPINEPHRINE
     Dosage: 0.3 MG, PRN
     Route: 030
     Dates: start: 20190628

REACTIONS (1)
  - Chest pain [Unknown]
